FAERS Safety Report 12397044 (Version 1)
Quarter: 2016Q2

REPORT INFORMATION
  Report Type: Spontaneous
  Country: JP (occurrence: JP)
  Receive Date: 20160524
  Receipt Date: 20160524
  Transmission Date: 20160815
  Serious: Yes (Other)
  Sender: FDA-Public Use
  Company Number: JP-009507513-1604JPN004955

PATIENT
  Age: 64 Year
  Sex: Female

DRUGS (3)
  1. REBETOL [Suspect]
     Active Substance: RIBAVIRIN
     Dosage: 600 MG DAILY, DIVIDED DOSE FREQUENCY UNKNOWN
     Route: 048
     Dates: start: 20160328
  2. REBETOL [Suspect]
     Active Substance: RIBAVIRIN
     Dosage: 400 MG, DIVIDED DOSE FREQUENCY UNKNOWN
     Route: 048
     Dates: start: 2016
  3. SOVALDI [Suspect]
     Active Substance: SOFOSBUVIR
     Indication: PRODUCT USED FOR UNKNOWN INDICATION
     Dosage: 400 MG DAILY, DIVIDED DOSE FREQUENCY UNKNOWN
     Route: 048
     Dates: start: 20160328

REACTIONS (2)
  - Blood uric acid increased [Not Recovered/Not Resolved]
  - Renal impairment [Not Recovered/Not Resolved]

NARRATIVE: CASE EVENT DATE: 20160405
